FAERS Safety Report 25424941 (Version 1)
Quarter: 2025Q2

REPORT INFORMATION
  Report Type: Spontaneous
  Country: US (occurrence: US)
  Receive Date: 20250611
  Receipt Date: 20250611
  Transmission Date: 20250716
  Serious: Yes (Hospitalization)
  Sender: REGENERON
  Company Number: US-REGENERON PHARMACEUTICALS, INC.-2025-092001

PATIENT
  Sex: Female

DRUGS (3)
  1. EYLEA [Suspect]
     Active Substance: AFLIBERCEPT
     Indication: Neovascular age-related macular degeneration
     Dosage: 2 MG, EVERY 9 WEEKS, FORMULATION: PRE-FILLED SYRINGE (PFS) ((GERRESHEIMER)
     Dates: start: 20221027
  2. EYLEA [Suspect]
     Active Substance: AFLIBERCEPT
     Indication: Choroidal neovascularisation
     Dates: start: 20250320, end: 20250320
  3. EYLEA [Suspect]
     Active Substance: AFLIBERCEPT
     Dates: start: 20250320, end: 20250320

REACTIONS (2)
  - Hospitalisation [Unknown]
  - Visual impairment [Unknown]

NARRATIVE: CASE EVENT DATE: 20250101
